FAERS Safety Report 9340630 (Version 1)
Quarter: 2013Q2

REPORT INFORMATION
  Report Type: Spontaneous
  Country: US (occurrence: US)
  Receive Date: 20130610
  Receipt Date: 20130610
  Transmission Date: 20140414
  Serious: No
  Sender: FDA-Public Use
  Company Number: US-ASTRAZENECA-2013SE37804

PATIENT
  Age: 69 Year
  Sex: Female
  Weight: 91.6 kg

DRUGS (2)
  1. NEXIUM [Suspect]
     Indication: GASTROOESOPHAGEAL REFLUX DISEASE
     Route: 048
     Dates: start: 2012, end: 2012
  2. VERAPAMIL [Concomitant]
     Indication: HYPERTENSION
     Route: 048

REACTIONS (4)
  - Dyspnoea exertional [Unknown]
  - Headache [Unknown]
  - Dyspnoea [Unknown]
  - Off label use [Unknown]
